FAERS Safety Report 7625265-4 (Version None)
Quarter: 2011Q3

REPORT INFORMATION
  Report Type: 
  Country: None (occurrence: None)
  Receive Date: 20110713
  Receipt Date: 20110628
  Transmission Date: 20111222
  Serious: Yes (Death, Life-Threatening, Hospitalization)
  Sender: FDA-Public Use
  Company Number: 2011MA008152

PATIENT
  Age: 69 Year
  Sex: Male

DRUGS (3)
  1. HYDROCORTISONE 1%-P CREAM [Suspect]
     Indication: HYPERTHYROIDISM
  2. LANDIOLOL (LANDIOLOL) [Suspect]
     Indication: HYPERTHYROIDISM
  3. IODINE (IODINE) [Suspect]
     Indication: HYPERTHYROIDISM

REACTIONS (3)
  - MULTI-ORGAN FAILURE [None]
  - VENTRICULAR FIBRILLATION [None]
  - ATRIAL FIBRILLATION [None]
